FAERS Safety Report 4398133-1 (Version None)
Quarter: 2004Q3

REPORT INFORMATION
  Report Type: 
  Country: None (occurrence: None)
  Receive Date: 20040713
  Receipt Date: 20040628
  Transmission Date: 20050211
  Serious: Yes (Hospitalization)
  Sender: FDA-Public Use
  Company Number: 2004222240BE

PATIENT
  Age: 55 Year
  Sex: Male

DRUGS (5)
  1. CAMPTOSAR [Suspect]
     Indication: GASTRIC CANCER
     Dosage: 180 MG/M2, DAY 1 Q2WKS, IV
     Route: 042
     Dates: start: 20030519, end: 20030616
  2. TAVANIC (LEVOFLOXACIN) [Concomitant]
  3. NEXIAN [Concomitant]
  4. MS CONTIN [Concomitant]
  5. PANTOZOL (PANTOPRAZOLE SODIUM) [Concomitant]

REACTIONS (4)
  - ABDOMINAL ABSCESS [None]
  - CHILLS [None]
  - GASTRIC PERFORATION [None]
  - PYREXIA [None]
